FAERS Safety Report 5182968-1 (Version None)
Quarter: 2006Q4

REPORT INFORMATION
  Report Type: 
  Country: None (occurrence: None)
  Receive Date: 20061212
  Receipt Date: 20061129
  Transmission Date: 20070319
  Serious: Yes (Other)
  Sender: FDA-Public Use
  Company Number: 2006147161

PATIENT

DRUGS (1)
  1. GEODON [Suspect]

REACTIONS (3)
  - BRADYCARDIA [None]
  - CARDIAC FUNCTION DISTURBANCE POSTOPERATIVE [None]
  - SURGERY [None]
